FAERS Safety Report 14671680 (Version 1)
Quarter: 2018Q1

REPORT INFORMATION
  Report Type: Spontaneous
  Country: ES (occurrence: ES)
  Receive Date: 20180323
  Receipt Date: 20180323
  Transmission Date: 20180509
  Serious: Yes (Other)
  Sender: FDA-Public Use
  Company Number: ES-009507513-1803ESP007807

PATIENT
  Age: 65 Year
  Sex: Female

DRUGS (1)
  1. AERINAZE [Suspect]
     Active Substance: DESLORATADINE\PSEUDOEPHEDRINE
     Indication: EYE ALLERGY
     Dosage: 2 TABLET, UNK
     Route: 048
     Dates: end: 201803

REACTIONS (3)
  - Blood pressure increased [Recovered/Resolved]
  - Tachycardia [Recovered/Resolved]
  - Hypersensitivity [Recovered/Resolved]

NARRATIVE: CASE EVENT DATE: 20180315
